APPROVED DRUG PRODUCT: SODIUM FLUORIDE F-18
Active Ingredient: SODIUM FLUORIDE F-18
Strength: 10-200mCi/ML
Dosage Form/Route: INJECTABLE;INTRAVENOUS
Application: A204530 | Product #001
Applicant: HOT SHOTS NUCLEAR MEDICINE LLC
Approved: Jul 29, 2015 | RLD: No | RS: No | Type: DISCN